FAERS Safety Report 7838410-2 (Version None)
Quarter: 2011Q4

REPORT INFORMATION
  Report Type: 
  Country: None (occurrence: None)
  Receive Date: 20111024
  Receipt Date: 20111019
  Transmission Date: 20120403
  Serious: Yes (Hospitalization)
  Sender: FDA-Public Use
  Company Number: GR-MERCK-1110GRC00002

PATIENT
  Age: 80 Year
  Sex: Female

DRUGS (5)
  1. JANUMET [Suspect]
     Indication: DIABETES MELLITUS
     Route: 048
     Dates: start: 20100101, end: 20100101
  2. SERTRALINE HYDROCHLORIDE [Concomitant]
     Route: 065
  3. QUINAPRIL HYDROCHLORIDE [Concomitant]
     Indication: HYPERTENSION
     Route: 048
  4. CYANOCOBALAMIN AND PYRIDOXINE AND THIAMINE [Concomitant]
     Route: 065
  5. HYDROCHLOROTHIAZIDE [Concomitant]
     Route: 048

REACTIONS (1)
  - PEMPHIGOID [None]
